FAERS Safety Report 25135637 (Version 1)
Quarter: 2025Q1

REPORT INFORMATION
  Report Type: Report from Study
  Country: MX (occurrence: MX)
  Receive Date: 20250328
  Receipt Date: 20250328
  Transmission Date: 20250409
  Serious: Yes (Other)
  Sender: DAIICHI
  Company Number: MX-AstraZeneca-CH-00831547A

PATIENT
  Age: 62 Year
  Sex: Female
  Weight: 62 kg

DRUGS (3)
  1. ENHERTU [Suspect]
     Active Substance: FAM-TRASTUZUMAB DERUXTECAN-NXKI
     Indication: Breast cancer
     Dosage: 300 MG, ONCE EVERY 3 WK
     Route: 042
     Dates: start: 20250120
  2. ACYCLOVIR [Concomitant]
     Active Substance: ACYCLOVIR
     Indication: Herpes zoster
     Route: 065
     Dates: start: 20250205, end: 20250310
  3. RACECADOTRIL [Concomitant]
     Active Substance: RACECADOTRIL
     Indication: Diarrhoea
     Route: 048
     Dates: start: 202503, end: 202503

REACTIONS (3)
  - Herpes zoster [Recovered/Resolved]
  - Diarrhoea [Recovered/Resolved]
  - Dizziness [Unknown]

NARRATIVE: CASE EVENT DATE: 20250205
